FAERS Safety Report 7019901-3 (Version None)
Quarter: 2010Q3

REPORT INFORMATION
  Report Type: 
  Country: None (occurrence: None)
  Receive Date: 20100929
  Receipt Date: 20100323
  Transmission Date: 20110219
  Serious: Yes (Other)
  Sender: FDA-Public Use
  Company Number: US-BAYER-201014095NA

PATIENT
  Age: 24 Year
  Sex: Female
  Weight: 57 kg

DRUGS (7)
  1. YAZ [Suspect]
     Indication: PRODUCT USED FOR UNKNOWN INDICATION
     Route: 048
     Dates: start: 20090521
  2. YASMIN [Suspect]
     Indication: PRODUCT USED FOR UNKNOWN INDICATION
     Route: 048
     Dates: start: 20040120, end: 20090521
  3. OCELLA [Suspect]
     Indication: PRODUCT USED FOR UNKNOWN INDICATION
     Route: 048
     Dates: start: 20080716, end: 20081202
  4. IBUPROFEN [Concomitant]
  5. ACYCLOVIR SODIUM [Concomitant]
     Dates: start: 20030101
  6. SINGULAIR [Concomitant]
     Dates: start: 20050101
  7. PROVENTIL [Concomitant]
     Dates: start: 20050101

REACTIONS (4)
  - ABDOMINAL PAIN [None]
  - ABDOMINAL PAIN UPPER [None]
  - HEPATOBILIARY SCAN ABNORMAL [None]
  - NAUSEA [None]
